FAERS Safety Report 23998701 (Version 1)
Quarter: 2024Q2

REPORT INFORMATION
  Report Type: Spontaneous
  Country: DE (occurrence: DE)
  Receive Date: 20240621
  Receipt Date: 20240621
  Transmission Date: 20240715
  Serious: Yes (Other)
  Sender: FDA-Public Use
  Company Number: None

PATIENT
  Age: 37 Year
  Sex: Female
  Weight: 60 kg

DRUGS (12)
  1. CARBOPLATIN [Suspect]
     Active Substance: CARBOPLATIN
     Indication: Breast cancer female
     Dosage: 189 MILLIGRAM IN 250ML GLUCOSE 5% OVER 30 MINUTES (537ML/H)
     Route: 042
     Dates: start: 20240227
  2. CARBOPLATIN [Suspect]
     Active Substance: CARBOPLATIN
     Dosage: 189 MILLIGRAM IN 250ML GLUCOSE 5% OVER 30 MINUTES (537ML/H)
     Route: 042
     Dates: start: 20240305
  3. PACLITAXEL [Suspect]
     Active Substance: PACLITAXEL
     Indication: Breast cancer female
     Dosage: 103 MILLIGRAM IN 250ML NACL 0.9% (80MG/M?) OVER 1 HOUR (266ML/H)
     Route: 042
     Dates: start: 20240305
  4. PACLITAXEL [Suspect]
     Active Substance: PACLITAXEL
     Dosage: 103 MILLIGRAM IN 250ML NACL 0.9% (80MG/M?) OVER 1 HOUR (266ML/H)
     Route: 042
     Dates: start: 20240227
  5. CLEMASTINE [Concomitant]
     Active Substance: CLEMASTINE
     Indication: Premedication
     Dosage: UNKNOWN
     Route: 042
     Dates: start: 20240227
  6. CLEMASTINE [Concomitant]
     Active Substance: CLEMASTINE
     Dosage: UNKNOWN
     Route: 042
     Dates: start: 20240305
  7. DEXAMETHASONE [Concomitant]
     Active Substance: DEXAMETHASONE
     Indication: Premedication
     Dosage: 20 MILLIGRAM IN 100ML NACL I.V.
     Route: 042
     Dates: start: 20240227
  8. DEXAMETHASONE [Concomitant]
     Active Substance: DEXAMETHASONE
     Dosage: 20 MILLIGRAM IN 100ML NACL I.V.
     Route: 042
     Dates: start: 20240305
  9. FAMOTIDINE [Concomitant]
     Active Substance: FAMOTIDINE
     Indication: Premedication
     Dosage: 40 MILLIGRAM, ONE HOUR BEFORE THE START OF THERAPY
     Route: 048
     Dates: start: 20240305
  10. FAMOTIDINE [Concomitant]
     Active Substance: FAMOTIDINE
     Dosage: 40 MILLIGRAM, ONE HOUR BEFORE THE START OF THERAPY
     Route: 048
     Dates: start: 20240227
  11. GRANISETRON [Concomitant]
     Active Substance: GRANISETRON
     Indication: Premedication
     Dosage: UNKNOWN
     Route: 042
     Dates: start: 20240305
  12. GRANISETRON [Concomitant]
     Active Substance: GRANISETRON
     Dosage: UNKNOWN
     Route: 042
     Dates: start: 20240227

REACTIONS (5)
  - Tachycardia [Recovered/Resolved]
  - Restlessness [Recovered/Resolved]
  - Rash erythematous [Recovered/Resolved]
  - Burning sensation [Recovered/Resolved]
  - Dyspnoea [Recovered/Resolved]

NARRATIVE: CASE EVENT DATE: 20240305
